FAERS Safety Report 5147646-3 (Version None)
Quarter: 2006Q4

REPORT INFORMATION
  Report Type: 
  Country: None (occurrence: None)
  Receive Date: 20061110
  Receipt Date: 20061102
  Transmission Date: 20070319
  Serious: Yes (Other)
  Sender: FDA-Public Use
  Company Number: US-JNJFOC-20060601330

PATIENT
  Sex: Male
  Weight: 69.9 kg

DRUGS (3)
  1. REMICADE [Suspect]
     Indication: CROHN'S DISEASE
     Route: 042
  2. IMURAN [Concomitant]
     Indication: CROHN'S DISEASE
  3. 5-ASA [Concomitant]
     Indication: CROHN'S DISEASE

REACTIONS (1)
  - STAPHYLOCOCCAL ABSCESS [None]
